FAERS Safety Report 24135782 (Version 2)
Quarter: 2025Q1

REPORT INFORMATION
  Report Type: Spontaneous
  Country: US (occurrence: US)
  Receive Date: 20240725
  Receipt Date: 20250103
  Transmission Date: 20250409
  Serious: No
  Sender: BRISTOL-MYERS SQUIBB COMPANY
  Company Number: US-BRISTOL-MYERS SQUIBB COMPANY-2024-115247

PATIENT
  Age: 68 Year
  Sex: Male

DRUGS (12)
  1. POMALYST [Suspect]
     Active Substance: POMALIDOMIDE
     Indication: Plasma cell myeloma
     Route: 048
     Dates: start: 2023
  2. POMALYST [Suspect]
     Active Substance: POMALIDOMIDE
     Dosage: FREQUENCY-4 MG DAILY FOR 21 DAYS
     Route: 048
     Dates: start: 20240201
  3. AMLODIPINE BESYLATE\BENAZEPRIL HYDROCHLORIDE [Concomitant]
     Active Substance: AMLODIPINE BESYLATE\BENAZEPRIL HYDROCHLORIDE
  4. FUROSEMIDE [Concomitant]
     Active Substance: FUROSEMIDE
  5. GABAPENTIN [Concomitant]
     Active Substance: GABAPENTIN
  6. JARDIANCE [Concomitant]
     Active Substance: EMPAGLIFLOZIN
  7. METFORMIN [Concomitant]
     Active Substance: METFORMIN HYDROCHLORIDE
  8. OZEMPIC [Concomitant]
     Active Substance: SEMAGLUTIDE
  9. ROSUVASTATIN [Concomitant]
     Active Substance: ROSUVASTATIN
  10. SPIRONOLACTONE [Concomitant]
     Active Substance: SPIRONOLACTONE
  11. VALACYCLOVIR [Concomitant]
     Active Substance: VALACYCLOVIR HYDROCHLORIDE
  12. VELCADE [Concomitant]
     Active Substance: BORTEZOMIB

REACTIONS (3)
  - Fatigue [Recovering/Resolving]
  - Muscular weakness [Recovering/Resolving]
  - Gait disturbance [Unknown]

NARRATIVE: CASE EVENT DATE: 20240701
